FAERS Safety Report 15307717 (Version 1)
Quarter: 2018Q3

REPORT INFORMATION
  Report Type: Spontaneous
  Country: IT (occurrence: IT)
  Receive Date: 20180822
  Receipt Date: 20180822
  Transmission Date: 20181010
  Serious: Yes (Other)
  Sender: FDA-Public Use
  Company Number: IT-TEVA-2018-IT-945379

PATIENT
  Age: 46 Year
  Sex: Female

DRUGS (2)
  1. PACLITAXEL TEVA 6 MG/ML, CONCENTRATO PER SOLUZIONE PER INFUSIONE [Suspect]
     Active Substance: PACLITAXEL
     Indication: OVARIAN CANCER
     Dates: start: 20180709, end: 20180730
  2. CARBOPLATINO HOSPIRA 50 MG/ 5 ML SOLUZIONE INIETTABILE PER USO ENDOVEN [Concomitant]

REACTIONS (4)
  - Dyspnoea [Recovering/Resolving]
  - Dermatitis bullous [Recovering/Resolving]
  - Urticaria [Recovering/Resolving]
  - Flushing [Recovering/Resolving]

NARRATIVE: CASE EVENT DATE: 20180730
